FAERS Safety Report 17860994 (Version 1)
Quarter: 2020Q2

REPORT INFORMATION
  Report Type: Spontaneous
  Country: US (occurrence: US)
  Receive Date: 20200604
  Receipt Date: 20200604
  Transmission Date: 20200714
  Serious: Yes (Other)
  Sender: FDA-Public Use
  Company Number: None

PATIENT
  Age: 90 Year
  Sex: Female
  Weight: 77 kg

DRUGS (16)
  1. ASCORBIC ACID. [Concomitant]
     Active Substance: ASCORBIC ACID
     Dates: start: 20200523, end: 20200527
  2. ASPIRIN. [Concomitant]
     Active Substance: ASPIRIN
     Dates: start: 20200520, end: 20200603
  3. CHOLECALCIFEROL [Concomitant]
     Active Substance: CHOLECALCIFEROL
     Dates: start: 20200520, end: 20200603
  4. LEVETIRACETAM. [Concomitant]
     Active Substance: LEVETIRACETAM
     Dates: start: 20200523, end: 20200603
  5. MULTIVITAMIN [Concomitant]
     Active Substance: VITAMINS
     Dates: start: 20200520, end: 20200603
  6. ATORVASTATIN [Concomitant]
     Active Substance: ATORVASTATIN
     Dates: start: 20200520, end: 20200603
  7. CODEINE/GUAIFENESIN [Concomitant]
     Active Substance: CODEINE\GUAIFENESIN
     Dates: start: 20200524, end: 20200524
  8. FENTANYL. [Concomitant]
     Active Substance: FENTANYL
     Dates: start: 20200524, end: 20200524
  9. FUROSEMIDE. [Concomitant]
     Active Substance: FUROSEMIDE
     Dates: start: 20200524, end: 20200524
  10. HYDRALAZINE [Concomitant]
     Active Substance: HYDRALAZINE HYDROCHLORIDE
     Dates: start: 20200524, end: 20200524
  11. LEVOTHYROXINE. [Concomitant]
     Active Substance: LEVOTHYROXINE
     Dates: start: 20200520, end: 20200603
  12. INSULIN [Concomitant]
     Active Substance: INSULIN NOS
     Dates: start: 20200520, end: 20200603
  13. DOCUSATE [Concomitant]
     Active Substance: DOCUSATE
     Dates: start: 20200520, end: 20200525
  14. PANTOPRAZOLE [Concomitant]
     Active Substance: PANTOPRAZOLE
     Dates: start: 20200520, end: 20200603
  15. REMDESIVIR. [Suspect]
     Active Substance: REMDESIVIR
     Indication: COVID-19
     Route: 041
     Dates: start: 20200524, end: 20200531
  16. ENOXAPARIN [Concomitant]
     Active Substance: ENOXAPARIN
     Dates: start: 20200520, end: 20200526

REACTIONS (5)
  - Lethargy [None]
  - Cognitive disorder [None]
  - Walking aid user [None]
  - Mental status changes [None]
  - Mechanical ventilation [None]

NARRATIVE: CASE EVENT DATE: 20200531
